FAERS Safety Report 9670857 (Version 1)
Quarter: 2013Q4

REPORT INFORMATION
  Report Type: Report from Study
  Country: KR (occurrence: KR)
  Receive Date: 20131106
  Receipt Date: 20131106
  Transmission Date: 20140711
  Serious: No
  Sender: FDA-Public Use
  Company Number: PHHY2013KR124386

PATIENT
  Age: 76 Year
  Sex: Female

DRUGS (10)
  1. AMN107 [Suspect]
     Indication: CHRONIC MYELOID LEUKAEMIA
     Dosage: 800 MG PER DAY
     Route: 048
     Dates: start: 20120913
  2. CODAEWON [Concomitant]
     Indication: UPPER RESPIRATORY TRACT INFECTION
     Dosage: 3 DF, UNK
     Route: 048
     Dates: start: 20121204, end: 20121211
  3. MUCOPECT [Concomitant]
     Indication: UPPER RESPIRATORY TRACT INFECTION
     Dosage: 3 DF, UNK
     Route: 048
     Dates: start: 20121204, end: 20121211
  4. GODEX [Concomitant]
     Indication: HEPATIC ENZYME ABNORMAL
     Dosage: 4 DF, UNK
     Route: 048
     Dates: start: 20121018, end: 20121031
  5. PANCREATIN [Concomitant]
     Indication: DYSPEPSIA
     Dosage: 4 DF, UNK
     Route: 048
     Dates: start: 20120920, end: 20130315
  6. ATORVASTATIN [Concomitant]
     Dosage: 10 MG, UNK
     Route: 048
     Dates: start: 20090421
  7. CILNIDIPINE [Concomitant]
     Indication: HYPERTENSION
     Dosage: 5 MG, UNK
     Route: 048
     Dates: start: 20051020
  8. RANITIDINE [Concomitant]
     Indication: GASTRIC ULCER
     Dosage: 1 DF, UNK
     Route: 048
     Dates: start: 20120920, end: 20121116
  9. MOSAPRIDE CITRATE [Concomitant]
     Indication: HYPERTENSION
     Dosage: 1 DF, UNK
     Route: 048
     Dates: start: 20120920, end: 20121116
  10. TYLENOL ARTHRITIS [Suspect]

REACTIONS (2)
  - Myalgia [Recovered/Resolved]
  - Insomnia [Recovered/Resolved]
